FAERS Safety Report 5427135-9 (Version None)
Quarter: 2007Q3

REPORT INFORMATION
  Report Type: 
  Country: None (occurrence: None)
  Receive Date: 20070828
  Receipt Date: 20070821
  Transmission Date: 20080115
  Serious: Yes (Hospitalization, Other)
  Sender: FDA-Public Use
  Company Number: PHBS2007JP13248

PATIENT
  Age: 74 Year
  Sex: Female
  Weight: 40 kg

DRUGS (5)
  1. DIOVAN [Suspect]
     Indication: HYPERTENSION
     Dosage: 40 MG/DAY
     Route: 048
     Dates: start: 20070101, end: 20070804
  2. LASIX [Suspect]
     Dosage: 20 MG/DAY
     Route: 048
     Dates: start: 20070101, end: 20070804
  3. MARZULENE [Suspect]
     Dosage: 2 G/DAY
     Route: 048
     Dates: start: 20070101, end: 20070804
  4. ALLOPURINOL [Suspect]
     Dosage: 100 MG/DAY
     Route: 048
     Dates: start: 20070101, end: 20070804
  5. LENDORMIN [Suspect]
     Dosage: 0.375 MG/DAY
     Route: 048
     Dates: start: 20070101, end: 20070804

REACTIONS (14)
  - BLOOD ALKALINE PHOSPHATASE INCREASED [None]
  - BLOOD CREATINE PHOSPHOKINASE INCREASED [None]
  - BLOOD CREATININE INCREASED [None]
  - BLOOD LACTATE DEHYDROGENASE INCREASED [None]
  - BLOOD UREA INCREASED [None]
  - C-REACTIVE PROTEIN INCREASED [None]
  - ERYTHEMA [None]
  - HAEMATOCRIT DECREASED [None]
  - HAEMOGLOBIN DECREASED [None]
  - LIP EROSION [None]
  - PYREXIA [None]
  - RENAL IMPAIRMENT [None]
  - STEVENS-JOHNSON SYNDROME [None]
  - WHITE BLOOD CELL COUNT INCREASED [None]
